FAERS Safety Report 15303358 (Version 3)
Quarter: 2018Q4

REPORT INFORMATION
  Report Type: Spontaneous
  Country: US (occurrence: US)
  Receive Date: 20180821
  Receipt Date: 20181016
  Transmission Date: 20190204
  Serious: No
  Sender: FDA-Public Use
  Company Number: US-AMGEN INC.-USASP2018107980

PATIENT
  Age: 52 Year
  Sex: Female

DRUGS (5)
  1. AIMOVIG [Suspect]
     Active Substance: ERENUMAB-AOOE
     Indication: MIGRAINE
     Dosage: 140 MG, UNK (2X70 MG)
     Route: 065
     Dates: start: 20180716
  2. AIMOVIG [Suspect]
     Active Substance: ERENUMAB-AOOE
     Dosage: 70 MG, UNK (1X70 MG)
     Route: 065
     Dates: start: 20180816, end: 20180816
  3. DIFLUCAN [Concomitant]
     Active Substance: FLUCONAZOLE
     Indication: HYPERSENSITIVITY
     Dosage: UNK
  4. VICODIN [Concomitant]
     Active Substance: ACETAMINOPHEN\HYDROCODONE BITARTRATE
     Indication: CONGENITAL CYSTIC KIDNEY DISEASE
     Dosage: UNK
  5. VICODIN [Concomitant]
     Active Substance: ACETAMINOPHEN\HYDROCODONE BITARTRATE
     Indication: OSTEOARTHRITIS

REACTIONS (19)
  - Feeling abnormal [Unknown]
  - Osteoarthritis [Unknown]
  - Migraine [Not Recovered/Not Resolved]
  - Abdominal pain upper [Unknown]
  - Gastrointestinal pain [Unknown]
  - Gait disturbance [Unknown]
  - Gastritis [Unknown]
  - Swelling [Unknown]
  - Hyperhidrosis [Unknown]
  - Vomiting [Unknown]
  - Lethargy [Unknown]
  - Agitation [Unknown]
  - Pain [Unknown]
  - Gastric dilatation [Unknown]
  - Gastrointestinal hypomotility [Unknown]
  - Sleep disorder due to a general medical condition [Unknown]
  - Drug withdrawal syndrome [Unknown]
  - Irritability [Unknown]
  - Hyperacusis [Unknown]

NARRATIVE: CASE EVENT DATE: 2018
